APPROVED DRUG PRODUCT: TORADOL
Active Ingredient: KETOROLAC TROMETHAMINE
Strength: 30MG/ML **Federal Register determination that product was not discontinued or withdrawn for safety or effectiveness reasons**
Dosage Form/Route: INJECTABLE;INJECTION
Application: N019698 | Product #002
Applicant: ROCHE PALO ALTO LLC
Approved: Nov 30, 1989 | RLD: Yes | RS: No | Type: DISCN